FAERS Safety Report 19778991 (Version 1)
Quarter: 2021Q3

REPORT INFORMATION
  Report Type: Spontaneous
  Country: DE (occurrence: DE)
  Receive Date: 20210902
  Receipt Date: 20210902
  Transmission Date: 20211014
  Serious: Yes (Other)
  Sender: FDA-Public Use
  Company Number: DE-ACCORD-236910

PATIENT
  Age: 38 Year
  Sex: Male

DRUGS (8)
  1. BISOPROLOL [Suspect]
     Active Substance: BISOPROLOL
     Indication: HYPERTENSION
     Route: 048
  2. HYDROCHLOROTHIAZIDE. [Suspect]
     Active Substance: HYDROCHLOROTHIAZIDE
     Indication: HYPERTENSION
  3. CARVEDILOL/CARVEDILOL HYDROCHLODRIDE [Suspect]
     Active Substance: CARVEDILOL HYDROCHLORIDE
     Indication: HYPERTENSION
     Dosage: 25 MG, PER DAY
     Route: 048
  4. AMLODIPINE [Suspect]
     Active Substance: AMLODIPINE BESYLATE
     Indication: HYPERTENSION
     Dosage: 5 MG, PER DAY
     Route: 048
  5. SPIRONOLACTONE. [Suspect]
     Active Substance: SPIRONOLACTONE
     Indication: HYPERTENSION
     Dosage: 50 MG, PER DAY
     Route: 048
  6. CANDESARTAN. [Suspect]
     Active Substance: CANDESARTAN
     Indication: HYPERTENSION
     Dosage: 8 MG, PER DAY
     Route: 048
  7. HYDROCHLOROTHIAZIDE/LISINOPRIL [Suspect]
     Active Substance: HYDROCHLOROTHIAZIDE\LISINOPRIL
     Indication: HYPERTENSION
     Dosage: 20/12.5 MG/MG, PER DAY
     Route: 048
  8. EPLERENONE. [Suspect]
     Active Substance: EPLERENONE
     Indication: GYNAECOMASTIA
     Dosage: 50 MG, 1X PER DAY

REACTIONS (6)
  - Gynaecomastia [Recovered/Resolved]
  - Hypokalaemia [Recovered/Resolved]
  - Erectile dysfunction [Unknown]
  - Off label use [Unknown]
  - Blood pressure inadequately controlled [Recovered/Resolved]
  - Drug ineffective [Unknown]
